FAERS Safety Report 15837086 (Version 1)
Quarter: 2019Q1

REPORT INFORMATION
  Report Type: Spontaneous
  Country: CO (occurrence: CO)
  Receive Date: 20190117
  Receipt Date: 20190117
  Transmission Date: 20190417
  Serious: Yes (Death, Hospitalization, Other)
  Sender: FDA-Public Use
  Company Number: CO-BAXTER-2019BAX000837

PATIENT
  Age: 76 Year
  Sex: Male
  Weight: 93 kg

DRUGS (1)
  1. DIANEAL PD-2 WITH DEXTROSE [Suspect]
     Active Substance: CALCIUM CHLORIDE\DEXTROSE\MAGNESIUM CHLORIDE\SODIUM CHLORIDE\SODIUM LACTATE
     Indication: CHRONIC KIDNEY DISEASE
     Route: 033
     Dates: start: 201810, end: 20181225

REACTIONS (4)
  - Acute myocardial infarction [Fatal]
  - General physical health deterioration [Not Recovered/Not Resolved]
  - Cardiac failure [Not Recovered/Not Resolved]
  - Acute myocardial infarction [Recovered/Resolved with Sequelae]

NARRATIVE: CASE EVENT DATE: 20181225
